FAERS Safety Report 5204741-8 (Version None)
Quarter: 2007Q1

REPORT INFORMATION
  Report Type: 
  Country: None (occurrence: None)
  Receive Date: 20070105
  Receipt Date: 20061227
  Transmission Date: 20070707
  Serious: Yes (Hospitalization)
  Sender: FDA-Public Use
  Company Number: 2006BI019064

PATIENT
  Age: 52 Year
  Sex: Male

DRUGS (1)
  1. AVONEX [Suspect]
     Indication: MULTIPLE SCLEROSIS
     Dosage: 1 UNK; QW;IM
     Route: 030
     Dates: start: 20040701, end: 20061115

REACTIONS (4)
  - BALANCE DISORDER [None]
  - COORDINATION ABNORMAL [None]
  - SPEECH DISORDER [None]
  - VISION BLURRED [None]
